FAERS Safety Report 6959486-0 (Version None)
Quarter: 2010Q3

REPORT INFORMATION
  Report Type: 
  Country: None (occurrence: None)
  Receive Date: 20100827
  Receipt Date: 20100813
  Transmission Date: 20110219
  Serious: Yes (Other)
  Sender: FDA-Public Use
  Company Number: 10-001062

PATIENT
  Age: 74 Year
  Sex: Female
  Weight: 65.8 kg

DRUGS (4)
  1. ESTRACE [Suspect]
     Indication: VAGINAL INFECTION
     Dosage: SINGLE DOSE, VAGINAL
     Route: 067
     Dates: start: 20100601, end: 20100601
  2. TOPRIL (RAMIPRIL) [Concomitant]
  3. NORVASC [Concomitant]
  4. PRINIVIL (LISINOPRIL DIHYDRATE) [Concomitant]

REACTIONS (3)
  - HEART RATE IRREGULAR [None]
  - OEDEMA PERIPHERAL [None]
  - SUPRAVENTRICULAR TACHYCARDIA [None]
